FAERS Safety Report 7909515-2 (Version None)
Quarter: 2011Q4

REPORT INFORMATION
  Report Type: 
  Country: None (occurrence: None)
  Receive Date: 20111111
  Receipt Date: 20111107
  Transmission Date: 20120403
  Serious: Yes (Other)
  Sender: FDA-Public Use
  Company Number: CA-BAYER-2011-107546

PATIENT

DRUGS (1)
  1. CLOTRIMAZOLE [Suspect]
     Dosage: UNK
     Dates: start: 20111103, end: 20111104

REACTIONS (2)
  - VAGINAL HAEMORRHAGE [None]
  - MUSCLE SPASMS [None]
